FAERS Safety Report 5372942-4 (Version None)
Quarter: 2007Q2

REPORT INFORMATION
  Report Type: 
  Country: None (occurrence: None)
  Receive Date: 20070619
  Receipt Date: 20070220
  Transmission Date: 20071010
  Serious: No
  Sender: FDA-Public Use
  Company Number: 2007US000364

PATIENT
  Sex: Male

DRUGS (2)
  1. VESICARE [Suspect]
     Indication: POLLAKIURIA
     Dosage: SEE IMAGE
     Route: 048
     Dates: start: 20070101
  2. ASPIRIN [Concomitant]

REACTIONS (4)
  - ABDOMINAL PAIN UPPER [None]
  - CONSTIPATION [None]
  - DRUG INEFFECTIVE [None]
  - HEADACHE [None]
